FAERS Safety Report 21718598 (Version 1)
Quarter: 2022Q4

REPORT INFORMATION
  Report Type: Spontaneous
  Country: IN (occurrence: IN)
  Receive Date: 20221212
  Receipt Date: 20221212
  Transmission Date: 20230112
  Serious: Yes (Other)
  Sender: FDA-Public Use
  Company Number: IN-STRIDES ARCOLAB LIMITED-2022SP016655

PATIENT
  Age: 36 Year
  Sex: Female

DRUGS (5)
  1. PREDNISOLONE [Suspect]
     Active Substance: PREDNISOLONE
     Indication: Plasmablastic lymphoma
     Dosage: UNK, CYCLICAL (ADMINISTERED UNDER THE LEVEL II DA-EPOCH CHEMOTHERAPY REGIMEN)
     Route: 065
  2. ETOPOSIDE [Suspect]
     Active Substance: ETOPOSIDE
     Indication: Plasmablastic lymphoma
     Dosage: UNK, CYCLICAL (ADMINISTERED UNDER THE LEVEL II DA-EPOCH CHEMOTHERAPY REGIMEN)
     Route: 065
  3. DOXORUBICIN [Suspect]
     Active Substance: DOXORUBICIN
     Indication: Plasmablastic lymphoma
     Dosage: UNK, CYCLICAL (ADMINISTERED UNDER THE LEVEL II DA-EPOCH CHEMOTHERAPY REGIMEN)
     Route: 065
  4. VINCRISTINE [Suspect]
     Active Substance: VINCRISTINE
     Indication: Plasmablastic lymphoma
     Dosage: UNK, CYCLICAL (ADMINISTERED UNDER THE LEVEL II DA-EPOCH CHEMOTHERAPY REGIMEN)
     Route: 065
  5. CYCLOPHOSPHAMIDE [Suspect]
     Active Substance: CYCLOPHOSPHAMIDE
     Indication: Plasmablastic lymphoma
     Dosage: UNK, CYCLICAL (ADMINISTERED UNDER THE LEVEL II DA-EPOCH CHEMOTHERAPY REGIMEN)
     Route: 065

REACTIONS (4)
  - Febrile neutropenia [Unknown]
  - Neutropenia [Recovered/Resolved]
  - Thrombocytopenia [Unknown]
  - Off label use [Unknown]
